FAERS Safety Report 7926327-4 (Version None)
Quarter: 2011Q4

REPORT INFORMATION
  Report Type: 
  Country: None (occurrence: None)
  Receive Date: 20111118
  Receipt Date: 20111109
  Transmission Date: 20120403
  Serious: No
  Sender: FDA-Public Use
  Company Number: US-BIOGENIDEC-2011BI020286

PATIENT
  Sex: Male

DRUGS (1)
  1. TYSABRI [Suspect]
     Indication: MULTIPLE SCLEROSIS
     Route: 042
     Dates: start: 20090810

REACTIONS (6)
  - GAIT DISTURBANCE [None]
  - ABASIA [None]
  - MOBILITY DECREASED [None]
  - DRUG INEFFECTIVE [None]
  - FALL [None]
  - DYSPHAGIA [None]
